FAERS Safety Report 11457258 (Version 2)
Quarter: 2015Q3

REPORT INFORMATION
  Report Type: Report from Study
  Country: DE (occurrence: DE)
  Receive Date: 20150904
  Receipt Date: 20150923
  Transmission Date: 20151125
  Serious: Yes (Hospitalization)
  Sender: FDA-Public Use
  Company Number: DE-ROCHE-1611838

PATIENT
  Age: 59 Year
  Sex: Female
  Weight: 70 kg

DRUGS (5)
  1. PREDNISOLON [Concomitant]
     Active Substance: PREDNISOLONE
     Indication: RHEUMATOID ARTHRITIS
     Route: 048
  2. L-THYROXIN [Concomitant]
     Active Substance: LEVOTHYROXINE SODIUM
     Indication: THYROID DISORDER
     Route: 048
  3. OMEP [Concomitant]
     Active Substance: OMEPRAZOLE
     Indication: GASTRITIS
     Route: 048
  4. ROACTEMRA [Suspect]
     Active Substance: TOCILIZUMAB
     Route: 058
     Dates: start: 20150711
  5. ROACTEMRA [Suspect]
     Active Substance: TOCILIZUMAB
     Indication: RHEUMATOID ARTHRITIS
     Route: 058
     Dates: start: 20140530, end: 201506

REACTIONS (5)
  - Cough [Not Recovered/Not Resolved]
  - Cough [Not Recovered/Not Resolved]
  - Cholelithiasis [Unknown]
  - Oropharyngeal pain [Recovered/Resolved]
  - Respiratory tract infection [Recovered/Resolved]

NARRATIVE: CASE EVENT DATE: 201503
